FAERS Safety Report 16409589 (Version 1)
Quarter: 2019Q2

REPORT INFORMATION
  Report Type: Spontaneous
  Country: US (occurrence: US)
  Receive Date: 20190610
  Receipt Date: 20190610
  Transmission Date: 20190711
  Serious: No
  Sender: FDA-Public Use
  Company Number: US-TEVA-2019-US-1048731

PATIENT
  Age: 77 Year
  Sex: Male

DRUGS (1)
  1. CARBIDOPA AND LEVODOPA ACTAVIS [Suspect]
     Active Substance: CARBIDOPA\LEVODOPA
     Dosage: CARBIDOPA 25MG/LEVODOPA 100 MG

REACTIONS (7)
  - Limb discomfort [Unknown]
  - Feeling abnormal [Unknown]
  - Drug ineffective [Unknown]
  - Hypokinesia [Unknown]
  - Dysphonia [Unknown]
  - Headache [Unknown]
  - Somnolence [Unknown]
